FAERS Safety Report 6430649-6 (Version None)
Quarter: 2009Q4

REPORT INFORMATION
  Report Type: 
  Country: None (occurrence: None)
  Receive Date: 20091106
  Receipt Date: 20091029
  Transmission Date: 20100525
  Serious: Yes (Hospitalization)
  Sender: FDA-Public Use
  Company Number: B0600458A

PATIENT
  Age: 86 Year
  Sex: Female

DRUGS (4)
  1. LAMICTAL [Suspect]
     Indication: DRUG USE FOR UNKNOWN INDICATION
     Dosage: 25MG PER DAY
     Route: 048
     Dates: start: 20090930, end: 20091024
  2. EXCEGRAN [Concomitant]
     Route: 048
  3. GRAMALIL [Concomitant]
     Route: 048
  4. RISPERDAL [Concomitant]
     Route: 065

REACTIONS (2)
  - FAECES DISCOLOURED [None]
  - VOMITING [None]
